FAERS Safety Report 20008505 (Version 2)
Quarter: 2021Q4

REPORT INFORMATION
  Report Type: Spontaneous
  Country: FR (occurrence: FR)
  Receive Date: 20211028
  Receipt Date: 20211112
  Transmission Date: 20220303
  Serious: Yes (Death, Other)
  Sender: FDA-Public Use
  Company Number: None

PATIENT
  Age: 62 Year
  Sex: Female
  Weight: 68 kg

DRUGS (28)
  1. FILGRASTIM [Suspect]
     Active Substance: FILGRASTIM
     Indication: Product used for unknown indication
     Dosage: 30 DF, QD (30 MIU/D)
     Route: 042
     Dates: start: 20210928
  2. CYCLOSPORINE [Suspect]
     Active Substance: CYCLOSPORINE
     Indication: Transplant
     Dosage: 250 MG, QD (250 MG/DAY)
     Route: 042
     Dates: start: 20210915
  3. TERBUTALINE SULFATE [Suspect]
     Active Substance: TERBUTALINE SULFATE
     Indication: Product used for unknown indication
     Dosage: 2 L (2L /MIN IF NEEDED)
     Route: 045
  4. LANSOPRAZOLE [Suspect]
     Active Substance: LANSOPRAZOLE
     Indication: Product used for unknown indication
     Dosage: 30 MG, QD
     Route: 048
     Dates: start: 20210915
  5. BISOPROLOL FUMARATE [Suspect]
     Active Substance: BISOPROLOL FUMARATE
     Indication: Product used for unknown indication
     Dosage: 1.25 MG, QD (1.25 MG/DAY)
     Route: 048
     Dates: start: 20210915
  6. VALACYCLOVIR HYDROCHLORIDE [Suspect]
     Active Substance: VALACYCLOVIR HYDROCHLORIDE
     Indication: Product used for unknown indication
     Dosage: 500 MG, QD (500 MG/DAY)
     Route: 048
     Dates: start: 20210916
  7. METOCLOPRAMIDE HYDROCHLORIDE [Suspect]
     Active Substance: METOCLOPRAMIDE HYDROCHLORIDE
     Indication: Product used for unknown indication
     Dosage: 10 MG (10 MG IF NEEDED) (SOLUTION FOR INJECTION (IM, IV) IN 5 ML AMPOULE)
     Route: 042
     Dates: start: 20210916
  8. URSODIOL [Suspect]
     Active Substance: URSODIOL
     Indication: Product used for unknown indication
     Dosage: 500 MG, Q8H (500 MG, TID)
     Route: 048
     Dates: start: 20210915
  9. MORPHINE SULFATE [Suspect]
     Active Substance: MORPHINE SULFATE
     Indication: Product used for unknown indication
     Dosage: 30 MG/D MAXIMUM; ACTISKENAN 5 MG,
     Route: 048
     Dates: start: 20210915
  10. PREGABALIN [Suspect]
     Active Substance: PREGABALIN
     Indication: Product used for unknown indication
     Dosage: 150 MG, QD (75 MG TWICE/DAY)
     Route: 048
     Dates: start: 20210916
  11. MEROPENEM [Suspect]
     Active Substance: MEROPENEM
     Indication: Product used for unknown indication
     Dosage: 3 G, QD
     Route: 042
     Dates: start: 20210918
  12. MEROPENEM [Suspect]
     Active Substance: MEROPENEM
     Dosage: 1 G, Q8H (1G 3 TIMES DAILY)
     Route: 042
     Dates: start: 20210918
  13. TRANEXAMIC ACID [Suspect]
     Active Substance: TRANEXAMIC ACID
     Indication: Product used for unknown indication
     Dosage: 3 G, QD (3 G PAR JOUR)
     Route: 042
     Dates: start: 20210919
  14. PHLOROGLUCINOL [Suspect]
     Active Substance: PHLOROGLUCINOL
     Indication: Product used for unknown indication
     Dosage: 40 MG IF NEEDED
     Route: 042
     Dates: start: 20210916
  15. FLUCONAZOLE [Suspect]
     Active Substance: FLUCONAZOLE
     Indication: Product used for unknown indication
     Dosage: 400 MG, Q12H (400 MG TWICE / DAY)
     Route: 041
     Dates: start: 20210916
  16. CELLCEPT [Suspect]
     Active Substance: MYCOPHENOLATE MOFETIL\MYCOPHENOLATE MOFETIL HYDROCHLORIDE
     Indication: Product used for unknown indication
     Dosage: 700 MG, Q8H
     Route: 042
     Dates: start: 20210915
  17. FUROSEMIDE [Suspect]
     Active Substance: FUROSEMIDE
     Indication: Product used for unknown indication
     Dosage: 80 MG, QD (80 MG/DAY)
     Route: 042
     Dates: start: 20210915
  18. NEFOPAM [Suspect]
     Active Substance: NEFOPAM
     Indication: Product used for unknown indication
     Dosage: 120 MG, QD (120 MG/24H)
     Route: 042
     Dates: start: 20210916
  19. MORPHINE SULFATE [Suspect]
     Active Substance: MORPHINE SULFATE
     Indication: Product used for unknown indication
     Dosage: 30 MG, QD (30 MG/D MAXIMUM; ACTISKENAN 5 MG)
     Route: 048
     Dates: start: 20210915
  20. FLUDARABINE [Concomitant]
     Active Substance: FLUDARABINE PHOSPHATE
     Indication: Product used for unknown indication
     Dosage: 51 MG (D-6/D-5/D-4/D-3/D-2)
     Route: 065
  21. CYCLOPHOSPHAMIDE [Concomitant]
     Active Substance: CYCLOPHOSPHAMIDE
     Indication: Product used for unknown indication
     Dosage: 990 MG (D-5)
     Route: 065
  22. CYCLOPHOSPHAMIDE [Concomitant]
     Active Substance: CYCLOPHOSPHAMIDE
     Dosage: 50 MG/KG (D-3)
     Route: 065
  23. CYCLOPHOSPHAMIDE [Concomitant]
     Active Substance: CYCLOPHOSPHAMIDE
     Dosage: 990 MG (D-6)
     Route: 065
  24. CYCLOPHOSPHAMIDE [Concomitant]
     Active Substance: CYCLOPHOSPHAMIDE
     Dosage: 50 MG/KG (D-4)
     Route: 065
  25. HEPARIN [Concomitant]
     Active Substance: HEPARIN SODIUM
     Indication: Product used for unknown indication
     Dosage: UNK (100/U/KG/DAY)
     Route: 065
  26. PIPERACILLIN SODIUM\TAZOBACTAM SODIUM [Concomitant]
     Active Substance: PIPERACILLIN SODIUM\TAZOBACTAM SODIUM
     Indication: Product used for unknown indication
     Dosage: UNK
     Route: 065
     Dates: start: 20210907
  27. PENTAMIDINE [Concomitant]
     Active Substance: PENTAMIDINE
     Indication: Product used for unknown indication
     Dosage: UNK (D-1)
     Route: 065
  28. VALACYCLOVIR HYDROCHLORIDE [Concomitant]
     Active Substance: VALACYCLOVIR HYDROCHLORIDE
     Indication: Product used for unknown indication
     Dosage: 500 MG
     Route: 065

REACTIONS (1)
  - Brain oedema [Fatal]

NARRATIVE: CASE EVENT DATE: 20211001
